FAERS Safety Report 14148985 (Version 1)
Quarter: 2017Q4

REPORT INFORMATION
  Report Type: Report from Study
  Country: US (occurrence: US)
  Receive Date: 20171101
  Receipt Date: 20171101
  Transmission Date: 20180321
  Serious: Yes (Hospitalization)
  Sender: FDA-Public Use
  Company Number: PHHO2013US005775

PATIENT
  Age: 42 Year
  Sex: Female
  Weight: 106.12 kg

DRUGS (7)
  1. COREG [Concomitant]
     Active Substance: CARVEDILOL
     Indication: HYPERTENSION
     Dosage: 12.5 MG, UNK
     Route: 048
     Dates: start: 20130208
  2. HUMALOG [Concomitant]
     Active Substance: INSULIN LISPRO
     Indication: TYPE 1 DIABETES MELLITUS
     Dosage: 10 U, PRN
     Route: 058
     Dates: start: 19850101
  3. LANTUS [Concomitant]
     Active Substance: INSULIN GLARGINE
     Indication: TYPE 1 DIABETES MELLITUS
     Dosage: 30 U, QD
     Route: 058
     Dates: start: 20000101
  4. ASPIRIN. [Concomitant]
     Active Substance: ASPIRIN
     Indication: CORONARY ARTERY DISEASE
     Dosage: 81 MG, QD
     Route: 048
     Dates: start: 20120621
  5. BRILINTA [Concomitant]
     Active Substance: TICAGRELOR
     Indication: CORONARY ARTERY DISEASE
     Dosage: 90 MG, QD
     Route: 048
     Dates: start: 20121228
  6. LIPITOR [Concomitant]
     Active Substance: ATORVASTATIN CALCIUM
     Indication: DYSLIPIDAEMIA
     Dosage: 20 MG, QD
     Route: 048
     Dates: start: 20120621
  7. ILARIS [Suspect]
     Active Substance: CANAKINUMAB
     Indication: CARDIOVASCULAR EVENT PROPHYLAXIS
     Dosage: 150 MG, QUARTERLY
     Route: 058
     Dates: start: 20130306

REACTIONS (2)
  - Urinary tract infection [Recovered/Resolved]
  - Sepsis [Recovered/Resolved]

NARRATIVE: CASE EVENT DATE: 20130420
